FAERS Safety Report 7968440 (Version 8)
Quarter: 2013Q2

REPORT INFORMATION
  Report Type: Report from Study
  Country: FR (occurrence: FR)
  Receive Date: 20110601
  Receipt Date: 20130412
  Transmission Date: 20140414
  Serious: Yes (Death, Life-Threatening, Hospitalization)
  Sender: FDA-Public Use
  Company Number: PHHO2011FR09131

PATIENT
  Age: 66 Year
  Sex: Female
  Weight: 48 kg

DRUGS (11)
  1. CGP 57148B [Suspect]
     Indication: PULMONARY ARTERIAL HYPERTENSION
     Dosage: 200 MG, QD
     Dates: start: 20110408, end: 20110526
  2. ENOXAPARIN [Suspect]
  3. TRACLEER [Concomitant]
  4. REVATIO [Concomitant]
  5. DIFFU K [Concomitant]
     Indication: PULMONARY ARTERIAL HYPERTENSION
     Dosage: 600 MG, UNK
  6. FORLAX [Concomitant]
  7. CORDARONE [Concomitant]
  8. BOSENTAN [Concomitant]
     Indication: PULMONARY ARTERIAL HYPERTENSION
     Dosage: 125 MG, BID
  9. SILDENAFIL [Concomitant]
     Indication: PULMONARY ARTERIAL HYPERTENSION
     Dosage: 20 MG, TID
  10. ESOMEPRAZOLE [Concomitant]
     Indication: GASTROOESOPHAGEAL REFLUX DISEASE
     Dosage: 20 MG, QD
  11. EPOPROSTENOL [Concomitant]
     Indication: PULMONARY ARTERIAL HYPERTENSION
     Dosage: 24 NG/KG/MIN

REACTIONS (3)
  - Subdural haemorrhage [Fatal]
  - Right ventricular failure [Fatal]
  - Disease progression [Fatal]
